FAERS Safety Report 8837295 (Version 3)
Quarter: 2013Q1

REPORT INFORMATION
  Report Type: Spontaneous
  Country: PL (occurrence: PL)
  Receive Date: 20121012
  Receipt Date: 20130122
  Transmission Date: 20140127
  Serious: Yes (Death, Other)
  Sender: FDA-Public Use
  Company Number: PL-CELGENEUS-129-21880-12100954

PATIENT
  Sex: 0

DRUGS (3)
  1. REVLIMID [Suspect]
     Indication: PLASMA CELL MYELOMA
     Route: 048
  2. DEXAMETHASONE [Concomitant]
     Indication: PLASMA CELL MYELOMA
     Route: 065
  3. PLACEBO [Concomitant]
     Indication: PLASMA CELL MYELOMA
     Route: 065

REACTIONS (34)
  - Multi-organ failure [Fatal]
  - Cardiac arrest [Fatal]
  - Pancytopenia [Fatal]
  - Acute graft versus host disease [Fatal]
  - Haemorrhage [Fatal]
  - Death [Fatal]
  - Plasmacytoma [Fatal]
  - Plasma cell myeloma [Fatal]
  - Septic shock [Fatal]
  - Pulmonary embolism [Fatal]
  - Renal failure [Fatal]
  - Cardiopulmonary failure [Fatal]
  - Pneumonia [Fatal]
  - Cerebrovascular accident [Fatal]
  - Cardiac tamponade [Unknown]
  - Liver injury [Unknown]
  - Sinus bradycardia [Unknown]
  - Epilepsy [Unknown]
  - Neutropenia [Unknown]
  - Anaemia [Unknown]
  - Thrombocytopenia [Unknown]
  - Blood creatinine increased [Unknown]
  - Venous thrombosis [Unknown]
  - Embolism [Unknown]
  - Cytomegalovirus infection [Unknown]
  - Atrial fibrillation [Unknown]
  - Polyneuropathy [Unknown]
  - Fatigue [Unknown]
  - Diarrhoea [Unknown]
  - Abscess [Unknown]
  - Herpes zoster [Unknown]
  - Infection [Unknown]
  - Pneumonia [Unknown]
  - Urinary tract infection [Unknown]
